FAERS Safety Report 9134810 (Version 1)
Quarter: 2013Q1

REPORT INFORMATION
  Report Type: Spontaneous
  Country: US (occurrence: US)
  Receive Date: 20130304
  Receipt Date: 20130304
  Transmission Date: 20140127
  Serious: Yes (Other)
  Sender: FDA-Public Use
  Company Number: US-BAYER-2013-026881

PATIENT
  Age: 79 Year
  Sex: Male
  Weight: 95.24 kg

DRUGS (10)
  1. ALEVE CAPLET/TABLET,MIDOL EXTENDED RELIEF CAPLET [Suspect]
     Dosage: 1 DF, ONCE
     Route: 048
     Dates: start: 201302, end: 201302
  2. SYNTHROID [Concomitant]
  3. LOVASTATIN [Concomitant]
  4. DIOVAN [Concomitant]
  5. BAYER ASPIRIN REGIMEN ADULT LOW STRENGTH [Concomitant]
  6. PROZAC [Concomitant]
  7. GEMFIBROZIL [Concomitant]
  8. SUCRALFATE [Concomitant]
  9. METFORMIN [Concomitant]
  10. GLYPOSIDE [Concomitant]

REACTIONS (1)
  - Blood glucose increased [None]
